FAERS Safety Report 25373951 (Version 1)
Quarter: 2025Q2

REPORT INFORMATION
  Report Type: Spontaneous
  Country: JP (occurrence: JP)
  Receive Date: 20250529
  Receipt Date: 20250529
  Transmission Date: 20250717
  Serious: Yes (Other)
  Sender: BAYER HEALTHCARE PHARMACEUTICALS INC.
  Company Number: JP-BAYER-2025A070897

PATIENT
  Sex: Male

DRUGS (4)
  1. XOFIGO [Suspect]
     Active Substance: RADIUM RA-223 DICHLORIDE
     Indication: Hormone-refractory prostate cancer
  2. XOFIGO [Suspect]
     Active Substance: RADIUM RA-223 DICHLORIDE
     Indication: Metastases to bone
  3. BICALUTAMIDE [Concomitant]
     Active Substance: BICALUTAMIDE
  4. XTANDI [Concomitant]
     Active Substance: ENZALUTAMIDE

REACTIONS (7)
  - Metastases to bone [None]
  - Prostatic specific antigen increased [None]
  - Decreased appetite [None]
  - Nausea [None]
  - Back pain [None]
  - Soft tissue disorder [None]
  - Chest discomfort [None]
